FAERS Safety Report 17071519 (Version 1)
Quarter: 2019Q4

REPORT INFORMATION
  Report Type: Spontaneous
  Country: US (occurrence: US)
  Receive Date: 20191125
  Receipt Date: 20191125
  Transmission Date: 20200122
  Serious: No
  Sender: FDA-Public Use
  Company Number: US-BAYER-2019-211296

PATIENT
  Age: 7 Year
  Sex: Male

DRUGS (3)
  1. CLARITIN [Suspect]
     Active Substance: LORATADINE
     Indication: NASOPHARYNGITIS
  2. FLINTSTONES GUMMIES [Suspect]
     Active Substance: VITAMINS
     Dosage: 2 DF, QD
     Route: 048
     Dates: start: 201905, end: 201911
  3. CLARITIN [Suspect]
     Active Substance: LORATADINE
     Indication: ALLERGIC RESPIRATORY SYMPTOM
     Dosage: 1 DF, QD
     Route: 048
     Dates: start: 2018

REACTIONS (3)
  - Vomiting [Unknown]
  - Constipation [Unknown]
  - Nausea [Unknown]

NARRATIVE: CASE EVENT DATE: 201909
